FAERS Safety Report 24563167 (Version 2)
Quarter: 2024Q4

REPORT INFORMATION
  Report Type: Spontaneous
  Country: JP (occurrence: JP)
  Receive Date: 20241030
  Receipt Date: 20241128
  Transmission Date: 20250115
  Serious: Yes (Hospitalization, Other)
  Sender: EMD SERONO INC
  Company Number: JP-Merck Healthcare KGaA-2024056858

PATIENT
  Age: 7 Decade
  Sex: Male

DRUGS (1)
  1. METGLUCO [Suspect]
     Active Substance: METFORMIN HYDROCHLORIDE
     Indication: Type 2 diabetes mellitus

REACTIONS (5)
  - Drug level increased [Unknown]
  - Renal impairment [Unknown]
  - Bacterial infection [Unknown]
  - General physical health deterioration [Unknown]
  - Lactic acidosis [Recovering/Resolving]
